FAERS Safety Report 16553212 (Version 2)
Quarter: 2019Q3

REPORT INFORMATION
  Report Type: Spontaneous
  Country: US (occurrence: US)
  Receive Date: 20190710
  Receipt Date: 20190725
  Transmission Date: 20191004
  Serious: No
  Sender: FDA-Public Use
  Company Number: US-PFIZER INC-2019293564

PATIENT
  Age: 56 Year
  Sex: Female
  Weight: 82 kg

DRUGS (2)
  1. MEDROXYPROGESTERONE ACETATE. [Suspect]
     Active Substance: MEDROXYPROGESTERONE ACETATE
     Dosage: 10 MG, 1X/DAY
     Route: 048
  2. ESTRADIOL. [Suspect]
     Active Substance: ESTRADIOL
     Dosage: 1 MG, 1X/DAY
     Route: 048

REACTIONS (2)
  - Weight increased [Unknown]
  - Weight decreased [Unknown]
